FAERS Safety Report 8872353 (Version 3)
Quarter: 2012Q4

REPORT INFORMATION
  Report Type: 
  Country: JP (occurrence: JP)
  Receive Date: 20121029
  Receipt Date: 20121115
  Transmission Date: 20130627
  Serious: Yes (Hospitalization)
  Sender: FDA-Public Use
  Company Number: JP-B.I. PHARMACEUTICALS,INC./RIDGEFIELD-2012-BP-26650NB

PATIENT
  Age: 75 Year
  Sex: Male

DRUGS (7)
  1. BI-SIFROL [Suspect]
     Dosage: 3 mg
     Route: 048
     Dates: end: 20121029
  2. ARTANE [Suspect]
     Dosage: 2 mg
     Route: 048
     Dates: end: 20121029
  3. NEODOPASTON [Suspect]
     Dosage: 300 mg
     Route: 048
  4. FP [Suspect]
     Dosage: 5 mg
     Route: 048
     Dates: end: 20121029
  5. GASMOTIN [Concomitant]
     Dosage: 15 mg
     Route: 048
     Dates: end: 20121029
  6. MAGMITT [Concomitant]
     Dosage: 1980 mg
     Route: 048
     Dates: end: 20121029
  7. LOXONIN [Concomitant]
     Route: 065
     Dates: end: 20121029

REACTIONS (1)
  - Hepatic function abnormal [Not Recovered/Not Resolved]
